FAERS Safety Report 6346973-1 (Version None)
Quarter: 2009Q3

REPORT INFORMATION
  Report Type: 
  Country: None (occurrence: None)
  Receive Date: 20090908
  Receipt Date: 20090908
  Transmission Date: 20100115
  Serious: No
  Sender: FDA-Public Use
  Company Number: None

PATIENT
  Age: 50 Year
  Sex: Female
  Weight: 113.3993 kg

DRUGS (1)
  1. TOPIRAMATE [Suspect]
     Indication: COMPLEX REGIONAL PAIN SYNDROME
     Dosage: 3  2  PO
     Route: 048
     Dates: start: 20090524, end: 20090624

REACTIONS (3)
  - HEADACHE [None]
  - PRODUCT SUBSTITUTION ISSUE [None]
  - SINUSITIS [None]
